FAERS Safety Report 6318621-8 (Version None)
Quarter: 2009Q3

REPORT INFORMATION
  Report Type: 
  Country: None (occurrence: None)
  Receive Date: 20090821
  Receipt Date: 20090812
  Transmission Date: 20100115
  Serious: Yes (Other)
  Sender: FDA-Public Use
  Company Number: PHHY2009DE33570

PATIENT
  Sex: Male

DRUGS (5)
  1. MYFORTIC [Suspect]
     Indication: HEART TRANSPLANT
     Dosage: 360 MG, BID
     Route: 048
     Dates: start: 20080501
  2. CERTICAN [Suspect]
     Indication: HEART TRANSPLANT
     Dosage: 1.25 MG, BID
     Route: 048
     Dates: start: 20080501
  3. ENABETA [Concomitant]
  4. CALCIUM [Concomitant]
  5. MAGNESIUM [Concomitant]

REACTIONS (3)
  - CONCOMITANT DISEASE AGGRAVATED [None]
  - EOSINOPHIL COUNT INCREASED [None]
  - GASTROINTESTINAL DISORDER [None]
